FAERS Safety Report 9094248 (Version 1)
Quarter: 2013Q1

REPORT INFORMATION
  Report Type: Spontaneous
  Country: US (occurrence: None)
  Receive Date: 20130122
  Receipt Date: 20130122
  Transmission Date: 20140127
  Serious: Yes (Death)
  Sender: FDA-Public Use
  Company Number: 1553099

PATIENT
  Age: 31 Year
  Sex: Male

DRUGS (7)
  1. LIDOCAINE HYDROCHLORIDE [Suspect]
  2. AMPHETAMINE [Suspect]
  3. OXYCODONE [Suspect]
  4. ETHANOL [Suspect]
  5. MEPROBAMATE [Suspect]
  6. HYDROXYZINE [Suspect]
  7. NAPROXEN [Suspect]

REACTIONS (5)
  - Cardiac arrest [None]
  - Respiratory arrest [None]
  - Drug abuse [None]
  - Poisoning [None]
  - Self-medication [None]
